FAERS Safety Report 7936322-7 (Version None)
Quarter: 2011Q4

REPORT INFORMATION
  Report Type: 
  Country: None (occurrence: None)
  Receive Date: 20111123
  Receipt Date: 20111117
  Transmission Date: 20120403
  Serious: Yes (Other)
  Sender: FDA-Public Use
  Company Number: DE-PFIZER INC-2011244576

PATIENT
  Age: 78 Year
  Sex: Male
  Weight: 82.3 kg

DRUGS (1)
  1. TOVIAZ [Suspect]
     Dosage: 4 MG, SINGLE
     Route: 048
     Dates: start: 20111008, end: 20111008

REACTIONS (6)
  - BLOOD PRESSURE INCREASED [None]
  - SPEECH DISORDER [None]
  - ABDOMINAL PAIN [None]
  - DRY MOUTH [None]
  - TACHYCARDIA [None]
  - DIZZINESS [None]
